FAERS Safety Report 5124871-9 (Version None)
Quarter: 2006Q4

REPORT INFORMATION
  Report Type: 
  Country: None (occurrence: None)
  Receive Date: 20061006
  Receipt Date: 20060920
  Transmission Date: 20070319
  Serious: Yes (Hospitalization)
  Sender: FDA-Public Use
  Company Number: 2006113887

PATIENT
  Age: 74 Year
  Sex: Male
  Weight: 108 kg

DRUGS (4)
  1. RANITIDINE HCL [Suspect]
     Indication: HYPERSENSITIVITY
     Dosage: INTRAVENOUS
     Route: 042
     Dates: start: 20060816
  2. CISPLATIN [Suspect]
     Indication: BREAST CANCER
     Dosage: 100 MG (1 IN 1 WK), INTRAVENOUS
     Route: 042
     Dates: start: 20060816, end: 20060816
  3. CHLORPHENIRAMINE MALEATE [Suspect]
     Indication: HYPERSENSITIVITY
     Dosage: INTRAVENOUS
     Route: 042
     Dates: start: 20060816
  4. ERBITUX [Suspect]
     Dosage: 800 MG (1 IN 1 WK), INTRAVENOUS
     Route: 042

REACTIONS (1)
  - CONJUNCTIVITIS [None]
